FAERS Safety Report 12926583 (Version 4)
Quarter: 2017Q2

REPORT INFORMATION
  Report Type: Report from Study
  Country: US (occurrence: US)
  Receive Date: 20161109
  Receipt Date: 20170529
  Transmission Date: 20170830
  Serious: Yes (Other)
  Sender: FDA-Public Use
  Company Number: US-MALLINCKRODT-T201605509

PATIENT
  Age: 64 Year
  Sex: Female

DRUGS (3)
  1. REPOSITORY CORTICOTROPIN INJECTION [Suspect]
     Active Substance: CORTICOTROPIN
     Dosage: 80 UNITS / 1ML, TWO TIMES PER WEEK (MONDAY AND THURSDAY)
     Route: 058
     Dates: start: 2016
  2. REPOSITORY CORTICOTROPIN INJECTION [Suspect]
     Active Substance: CORTICOTROPIN
     Indication: SARCOIDOSIS
     Dosage: 80 UNITS / 1ML, TWO TIMES PER WEEK (MONDAY AND THURSDAY)
     Route: 058
     Dates: start: 20160512, end: 20161013
  3. REPOSITORY CORTICOTROPIN INJECTION [Suspect]
     Active Substance: CORTICOTROPIN
     Dosage: 80 UNITS / 1ML, TWO TIMES PER WEEK (MONDAY AND THURSDAY)
     Route: 058
     Dates: start: 2016

REACTIONS (15)
  - Weight increased [Not Recovered/Not Resolved]
  - Insomnia [Recovering/Resolving]
  - Upper respiratory tract infection [Recovering/Resolving]
  - Skin discolouration [Not Recovered/Not Resolved]
  - Feeling abnormal [Not Recovered/Not Resolved]
  - Pulmonary function test abnormal [Not Recovered/Not Resolved]
  - Fatigue [Not Recovered/Not Resolved]
  - Peripheral swelling [Not Recovered/Not Resolved]
  - Cellulitis [Recovering/Resolving]
  - Incorrect product storage [Recovering/Resolving]
  - Upper respiratory tract congestion [Not Recovered/Not Resolved]
  - Cough [Recovering/Resolving]
  - Poor quality drug administered [Recovering/Resolving]
  - Hypothyroidism [Not Recovered/Not Resolved]
  - Expired product administered [Not Recovered/Not Resolved]

NARRATIVE: CASE EVENT DATE: 20160512
